FAERS Safety Report 17885953 (Version 2)
Quarter: 2020Q2

REPORT INFORMATION
  Report Type: Spontaneous
  Country: US (occurrence: US)
  Receive Date: 20200611
  Receipt Date: 20200612
  Transmission Date: 20200714
  Serious: No
  Sender: FDA-Public Use
  Company Number: US-009507513-1806USA003633

PATIENT
  Sex: Male

DRUGS (7)
  1. ZOSTAVAX [Suspect]
     Active Substance: VARICELLA-ZOSTER VIRUS STRAIN OKA/MERCK LIVE ANTIGEN
     Indication: ROUTINE HEALTH MAINTENANCE
     Route: 030
     Dates: start: 20130625, end: 20130625
  2. ZOSTAVAX [Suspect]
     Active Substance: VARICELLA-ZOSTER VIRUS STRAIN OKA/MERCK LIVE ANTIGEN
     Indication: PROPHYLAXIS
  3. STERILE DILUENT (WATER) [Suspect]
     Active Substance: WATER
     Indication: ROUTINE HEALTH MAINTENANCE
     Dosage: 1 DOSE, LEFT DELTOID
     Route: 030
     Dates: start: 20130625, end: 20130625
  4. METOCLOPRAMIDE. [Concomitant]
     Active Substance: METOCLOPRAMIDE
     Indication: GASTROOESOPHAGEAL REFLUX DISEASE
     Dosage: 10 MILLIGRAM TAB FOUR TIMES DAILY
     Route: 048
     Dates: start: 2010, end: 2019
  5. HYDROCODONE [Concomitant]
     Active Substance: HYDROCODONE
     Indication: BACK PAIN
     Dosage: 10-500 MG A TAB EVERY SIX HOURS PRN
     Route: 048
     Dates: start: 2007
  6. STERILE DILUENT (WATER) [Suspect]
     Active Substance: WATER
     Indication: PROPHYLAXIS
  7. OMEPRAZOLE. [Concomitant]
     Active Substance: OMEPRAZOLE
     Indication: GASTROOESOPHAGEAL REFLUX DISEASE
     Dosage: 20 MG 2 CAPS DAILY
     Route: 048
     Dates: start: 2010

REACTIONS (3)
  - Herpes zoster [Not Recovered/Not Resolved]
  - Vaccination failure [Unknown]
  - Back disorder [Not Recovered/Not Resolved]

NARRATIVE: CASE EVENT DATE: 20150922
